FAERS Safety Report 7414372-7 (Version None)
Quarter: 2011Q2

REPORT INFORMATION
  Report Type: 
  Country: None (occurrence: None)
  Receive Date: 20110414
  Receipt Date: 20110404
  Transmission Date: 20111010
  Serious: Yes (Other)
  Sender: FDA-Public Use
  Company Number: US-ELI_LILLY_AND_COMPANY-US201104001147

PATIENT
  Sex: Male
  Weight: 34.195 kg

DRUGS (4)
  1. ARIMIDEX [Concomitant]
     Indication: BONE DEVELOPMENT ABNORMAL
     Dosage: UNK
     Dates: start: 20100419
  2. DETROL LA [Concomitant]
     Indication: HYPERTONIC BLADDER
     Dosage: UNK
  3. CALCIUM + VITAMIN D [Concomitant]
     Indication: SUPPLEMENTATION THERAPY
     Dosage: UNK
     Dates: start: 20100414
  4. SOMATROPIN [Suspect]
     Indication: BODY HEIGHT BELOW NORMAL
     Dosage: 0.9 MG, BID 7 DAYS A WEEK
     Route: 058

REACTIONS (1)
  - TONGUE NEOPLASM MALIGNANT STAGE UNSPECIFIED [None]
